FAERS Safety Report 12543408 (Version 1)
Quarter: 2016Q3

REPORT INFORMATION
  Report Type: Spontaneous
  Country: US (occurrence: US)
  Receive Date: 20160711
  Receipt Date: 20160711
  Transmission Date: 20161109
  Serious: No
  Sender: FDA-Public Use
  Company Number: US-TEVA-610096USA

PATIENT
  Age: 49 Year
  Sex: Female
  Weight: 122.58 kg

DRUGS (1)
  1. VENLAFAXINE [Suspect]
     Active Substance: VENLAFAXINE HYDROCHLORIDE
     Indication: PANIC DISORDER
     Route: 048
     Dates: start: 20151024, end: 20151115

REACTIONS (9)
  - Arthralgia [Unknown]
  - Pain in extremity [Unknown]
  - Abnormal dreams [Unknown]
  - Lethargy [Unknown]
  - Influenza like illness [Unknown]
  - Neck pain [Unknown]
  - Asthenia [Unknown]
  - Muscle fatigue [Unknown]
  - Hypoaesthesia [Unknown]

NARRATIVE: CASE EVENT DATE: 20151112
